FAERS Safety Report 12463698 (Version 1)
Quarter: 2016Q2

REPORT INFORMATION
  Report Type: Spontaneous
  Country: US (occurrence: None)
  Receive Date: 20160613
  Receipt Date: 20160613
  Transmission Date: 20160815
  Serious: Yes (Other)
  Sender: FDA-Public Use
  Company Number: None

PATIENT
  Age: 52 Year
  Sex: Female
  Weight: 79.38 kg

DRUGS (2)
  1. ZOVIRAX OINTMENT (GENERIC) 5% [Suspect]
     Active Substance: ACYCLOVIR
     Indication: HERPES SIMPLEX
     Dosage: 5% SMALL AMT ON FINGERTIP  2-3X DAILY PRN  TOPICALLY TO EFFECTED SKIN AREAS
     Route: 061
  2. SKELAXIN 800MG (GENERIC) [Suspect]
     Active Substance: METAXALONE
     Indication: BONE PAIN
     Route: 048

REACTIONS (2)
  - Product substitution issue [None]
  - Adverse drug reaction [None]
